FAERS Safety Report 8762258 (Version 1)
Quarter: 2012Q4

REPORT INFORMATION
  Report Type: 
  Country: US (occurrence: US)
  Receive Date: 20120828
  Receipt Date: 20120828
  Transmission Date: 20130627
  Serious: No
  Sender: FDA-Public Use
  Company Number: US-GLAXOSMITHKLINE-A0959215A

PATIENT
  Sex: Male

DRUGS (1)
  1. BECONASE [Suspect]
     Indication: GRAFT VERSUS HOST DISEASE
     Route: 048

REACTIONS (3)
  - Overdose [Unknown]
  - Weight increased [Unknown]
  - Incorrect route of drug administration [Unknown]
